FAERS Safety Report 23098049 (Version 1)
Quarter: 2023Q4

REPORT INFORMATION
  Report Type: Spontaneous
  Country: US (occurrence: US)
  Receive Date: 20231023
  Receipt Date: 20231023
  Transmission Date: 20240110
  Serious: Yes (Hospitalization, Other)
  Sender: FDA-Public Use
  Company Number: US-SCALL-2023-US-034878

PATIENT
  Age: 64 Year
  Sex: Female

DRUGS (2)
  1. DIAZOXIDE [Concomitant]
     Active Substance: DIAZOXIDE
     Route: 048
  2. METHADONE HYDROCHLORIDE [Suspect]
     Active Substance: METHADONE HYDROCHLORIDE
     Indication: Drug abuse
     Dosage: 140 MG DAILY

REACTIONS (1)
  - Hypoglycaemia [Recovering/Resolving]
